FAERS Safety Report 25486686 (Version 2)
Quarter: 2025Q3

REPORT INFORMATION
  Report Type: Report from Study
  Country: CA (occurrence: CA)
  Receive Date: 20250627
  Receipt Date: 20250930
  Transmission Date: 20251021
  Serious: Yes (Other)
  Sender: CELLTRION
  Company Number: CA-CELLTRION INC.-2024CA029083

PATIENT

DRUGS (1)
  1. USTEKINUMAB [Suspect]
     Active Substance: USTEKINUMAB
     Indication: Colitis ulcerative
     Dosage: 90 MG, EVERY 4 WEEKS
     Route: 058
     Dates: start: 20241214

REACTIONS (8)
  - Haematochezia [Unknown]
  - Blood pressure increased [Unknown]
  - Heart rate increased [Unknown]
  - Diarrhoea [Unknown]
  - Off label use [Unknown]
  - Anxiety [Not Recovered/Not Resolved]
  - Panic attack [Recovering/Resolving]
  - Depression [Not Recovered/Not Resolved]

NARRATIVE: CASE EVENT DATE: 20241118
